FAERS Safety Report 6819892-1 (Version None)
Quarter: 2010Q3

REPORT INFORMATION
  Report Type: 
  Country: None (occurrence: None)
  Receive Date: 20100707
  Receipt Date: 20100630
  Transmission Date: 20110219
  Serious: Yes (Hospitalization)
  Sender: FDA-Public Use
  Company Number: US-ABBOTT-09P-163-0605481-00

PATIENT
  Sex: Male
  Weight: 28 kg

DRUGS (21)
  1. HUMIRA [Suspect]
     Indication: CROHN'S DISEASE
     Route: 058
     Dates: start: 20090514, end: 20091016
  2. PSYLLIUM [Concomitant]
     Indication: BOWEL MOVEMENT IRREGULARITY
     Route: 048
     Dates: start: 20080401
  3. FLINTSTONE VITAMINS W/IRON [Concomitant]
     Indication: VITAMIN SUPPLEMENTATION
     Route: 048
     Dates: start: 20000701
  4. CIPROFLOXACIN [Concomitant]
     Indication: ANTIBIOTIC PROPHYLAXIS
     Route: 048
     Dates: start: 20060301
  5. EQUATE ANTIBIOTIC CREAM [Concomitant]
     Indication: ANAL FISSURE
     Route: 061
     Dates: start: 20090616
  6. LUCRID LIPOCREAM [Concomitant]
     Indication: ECZEMA
     Route: 061
     Dates: start: 20090608
  7. BENADRYL [Concomitant]
     Indication: ECZEMA
     Route: 048
     Dates: start: 20090604, end: 20090604
  8. FLUOXINOLONE [Concomitant]
     Indication: RECTAL FISSURE
     Route: 061
     Dates: start: 20090710, end: 20090712
  9. CRYSTACIDE [Concomitant]
     Indication: RECTAL FISSURE
     Route: 061
     Dates: start: 20090712, end: 20090714
  10. DESITIN [Concomitant]
     Indication: RECTAL FISSURE
     Route: 061
     Dates: start: 20090726
  11. ELIDEL [Concomitant]
     Indication: RECTAL FISSURE
     Route: 061
     Dates: start: 20090811
  12. PENTASA [Concomitant]
     Indication: CROHN'S DISEASE
     Route: 048
     Dates: start: 20090905
  13. PENTASA [Concomitant]
     Route: 048
     Dates: start: 20090905
  14. PENTASA [Concomitant]
     Route: 048
     Dates: start: 20070101
  15. CIPRODEX [Concomitant]
     Indication: OTITIS EXTERNA
     Dates: start: 20090811, end: 20090818
  16. REGLAN [Concomitant]
     Indication: IMPAIRED GASTRIC EMPTYING
     Route: 048
     Dates: start: 20080101, end: 20090606
  17. PROZAC [Concomitant]
     Indication: DEPRESSION
     Route: 048
     Dates: start: 20081001
  18. PREVACID [Concomitant]
     Indication: GASTROOESOPHAGEAL REFLUX DISEASE
     Route: 048
     Dates: start: 20000101
  19. MELATONIN [Concomitant]
     Indication: SLEEP DISORDER THERAPY
     Route: 048
     Dates: start: 20080301
  20. MOTRIN IB [Concomitant]
     Indication: HEADACHE
     Route: 048
     Dates: start: 20030516
  21. CORTIFOAM [Concomitant]
     Indication: ANAL FISSURE
     Route: 061
     Dates: start: 20091117

REACTIONS (1)
  - H1N1 INFLUENZA [None]
